FAERS Safety Report 8770498 (Version 1)
Quarter: 2012Q4

REPORT INFORMATION
  Report Type: 
  Country: US (occurrence: US)
  Receive Date: 20120906
  Receipt Date: 20120906
  Transmission Date: 20130627
  Serious: No
  Sender: FDA-Public Use
  Company Number: US-JNJFOC-20120812127

PATIENT
  Age: 38 None
  Sex: Male
  Weight: 74.84 kg

DRUGS (4)
  1. SANDOZ FENTANYL TRANSDERMAL SYSTEM [Suspect]
     Indication: PAIN
     Route: 062
     Dates: start: 201204
  2. IMURAN [Concomitant]
     Indication: CROHN^S DISEASE
     Route: 048
  3. LIALDA [Concomitant]
     Indication: CROHN^S DISEASE
     Route: 048
  4. OXYCODONE [Concomitant]
     Indication: BREAKTHROUGH PAIN
     Dosage: as needed
     Route: 048

REACTIONS (3)
  - Poor quality drug administered [Not Recovered/Not Resolved]
  - Product quality issue [Not Recovered/Not Resolved]
  - Therapeutic response decreased [Not Recovered/Not Resolved]
